FAERS Safety Report 8610998-3 (Version None)
Quarter: 2012Q3

REPORT INFORMATION
  Report Type: 
  Country: None (occurrence: None)
  Receive Date: 20120822
  Receipt Date: 20120814
  Transmission Date: 20120928
  Serious: Yes (Other)
  Sender: FDA-Public Use
  Company Number: US-JNJFOC-20120809050

PATIENT
  Age: 80 Year
  Sex: Female

DRUGS (3)
  1. VITAMIN B-12 [Concomitant]
     Indication: PRODUCT USED FOR UNKNOWN INDICATION
     Route: 065
  2. ZYRTEC [Suspect]
     Route: 065
  3. ZYRTEC [Suspect]
     Indication: MULTIPLE ALLERGIES
     Route: 065
     Dates: start: 20100101

REACTIONS (4)
  - CATARACT [None]
  - WRONG DRUG ADMINISTERED [None]
  - DISORIENTATION [None]
  - CARPAL TUNNEL SYNDROME [None]
